FAERS Safety Report 22106199 (Version 3)
Quarter: 2023Q1

REPORT INFORMATION
  Report Type: Report from Study
  Country: US (occurrence: US)
  Receive Date: 20230317
  Receipt Date: 20230331
  Transmission Date: 20230417
  Serious: Yes (Disabling)
  Sender: FDA-Public Use
  Company Number: US-SA-SAC20230313000309

PATIENT
  Age: 59 Year
  Sex: Female

DRUGS (2)
  1. DUPILUMAB [Suspect]
     Active Substance: DUPILUMAB
     Indication: Dermatitis atopic
     Dosage: 600 MG, 1X
     Route: 058
  2. DUPILUMAB [Suspect]
     Active Substance: DUPILUMAB
     Dosage: 300 MG, QOW
     Route: 058

REACTIONS (8)
  - Impaired driving ability [Unknown]
  - Periorbital swelling [Unknown]
  - Psoriasis [Unknown]
  - Eye swelling [Unknown]
  - Ocular hyperaemia [Unknown]
  - Swelling face [Unknown]
  - Eye pruritus [Unknown]
  - Drug ineffective [Unknown]
